FAERS Safety Report 8205356-X (Version None)
Quarter: 2012Q1

REPORT INFORMATION
  Report Type: 
  Country: None (occurrence: None)
  Receive Date: 20120313
  Receipt Date: 20120305
  Transmission Date: 20120608
  Serious: Yes (Other)
  Sender: FDA-Public Use
  Company Number: CA-JNJFOC-20120302739

PATIENT
  Sex: Female
  Weight: 60.4 kg

DRUGS (13)
  1. QUININE SULFATE [Concomitant]
     Route: 065
  2. LACTASE [Concomitant]
     Route: 065
  3. PREDNISONE [Concomitant]
     Route: 065
  4. POTASSIUM [Concomitant]
     Route: 065
  5. FRONE [Concomitant]
     Route: 065
  6. RABEPRAZOLE SODIUM [Concomitant]
     Route: 065
  7. MAGNESIUM [Concomitant]
     Route: 065
  8. REMICADE [Suspect]
     Indication: CROHN'S DISEASE
     Route: 042
     Dates: start: 20070611
  9. DEXILANT [Concomitant]
     Route: 065
  10. COUMADIN [Concomitant]
     Route: 065
  11. VITAMIN B COMPLEX CAP [Concomitant]
     Route: 065
  12. IMODIUM [Concomitant]
     Route: 065
  13. ETIDRONATE DISODIUM [Concomitant]
     Route: 065

REACTIONS (2)
  - CATARACT [None]
  - ENDOSCOPY [None]
